FAERS Safety Report 10174779 (Version 2)
Quarter: 2014Q2

REPORT INFORMATION
  Report Type: Spontaneous
  Country: JP (occurrence: JP)
  Receive Date: 20140515
  Receipt Date: 20140522
  Transmission Date: 20141212
  Serious: Yes (Other)
  Sender: FDA-Public Use
  Company Number: JP-PFIZER INC-2014132293

PATIENT
  Age: 75 Year
  Sex: Female

DRUGS (4)
  1. LYRICA [Suspect]
     Indication: LUMBAR SPINAL STENOSIS
     Dosage: 25 MG, DAILY
     Route: 048
     Dates: start: 20130820, end: 20140513
  2. YOKUININ [Suspect]
     Indication: SKIN PAPILLOMA
     Dosage: 6 G, DAILY
     Route: 048
     Dates: start: 20140205
  3. LOXONIN [Concomitant]
     Indication: LUMBAR SPINAL STENOSIS
  4. ISALON [Concomitant]
     Indication: LUMBAR SPINAL STENOSIS

REACTIONS (2)
  - Interstitial lung disease [Unknown]
  - Skin papilloma [Unknown]
